FAERS Safety Report 9499351 (Version 1)
Quarter: 2013Q3

REPORT INFORMATION
  Report Type: Report from Study
  Country: ZA (occurrence: ZA)
  Receive Date: 20130905
  Receipt Date: 20130905
  Transmission Date: 20140515
  Serious: Yes (Death)
  Sender: FDA-Public Use
  Company Number: ZA-ROCHE-1269855

PATIENT
  Sex: Male

DRUGS (2)
  1. MIRCERA [Suspect]
     Indication: NEPHROGENIC ANAEMIA
     Dosage: 150 MONTHLY?LAST DOS EWAS TAKEN ON : 22/AUG/2013
     Route: 058
     Dates: start: 20130722
  2. MIRCERA [Suspect]
     Indication: PERITONEAL DIALYSIS

REACTIONS (1)
  - Cerebral haemorrhage [Fatal]
